FAERS Safety Report 8337652-X (Version None)
Quarter: 2012Q2

REPORT INFORMATION
  Report Type: 
  Country: None (occurrence: None)
  Receive Date: 20120504
  Receipt Date: 20120504
  Transmission Date: 20120825
  Serious: Yes (Life-Threatening)
  Sender: FDA-Public Use
  Company Number: None

PATIENT
  Age: 70 Year
  Sex: Male
  Weight: 77.11 kg

DRUGS (1)
  1. OXYCODONE HCL [Suspect]
     Indication: PAIN IN EXTREMITY
     Dosage: |DOSAGETEXT: 25 MG||STRENGTH: 5MG||FREQ: EVERY 6 HOURS|

REACTIONS (5)
  - DRUG EFFECT DECREASED [None]
  - PRODUCT QUALITY ISSUE [None]
  - PRODUCT COMMINGLING [None]
  - PRODUCT SUBSTITUTION ISSUE [None]
  - FEELING ABNORMAL [None]
